FAERS Safety Report 4988671-2 (Version None)
Quarter: 2006Q2

REPORT INFORMATION
  Report Type: 
  Country: None (occurrence: None)
  Receive Date: 20060502
  Receipt Date: 20051207
  Transmission Date: 20061013
  Serious: Yes (Hospitalization)
  Sender: FDA-Public Use
  Company Number: US-MERCK-0512USA01418

PATIENT
  Age: 58 Year
  Sex: Male
  Weight: 105 kg

DRUGS (3)
  1. VIOXX [Suspect]
     Indication: NECK PAIN
     Route: 048
     Dates: start: 20010101, end: 20040901
  2. ASPIRIN [Concomitant]
     Route: 065
  3. LIPITOR [Suspect]
     Indication: DYSLIPIDAEMIA
     Route: 048

REACTIONS (9)
  - ABDOMINAL HERNIA [None]
  - BREAST MASS [None]
  - CATARACT [None]
  - CHEST PAIN [None]
  - CHRONIC SINUSITIS [None]
  - CORONARY ARTERY DISEASE [None]
  - DYSPNOEA [None]
  - MYALGIA [None]
  - NEUROPATHY PERIPHERAL [None]
